FAERS Safety Report 9316435 (Version 1)
Quarter: 2013Q2

REPORT INFORMATION
  Report Type: Spontaneous
  Country: US (occurrence: None)
  Receive Date: 20130528
  Receipt Date: 20130528
  Transmission Date: 20140414
  Serious: Yes (Other)
  Sender: FDA-Public Use
  Company Number: None

PATIENT
  Age: 42 Year
  Sex: Female
  Weight: 135.17 kg

DRUGS (2)
  1. CLONIDINE [Suspect]
     Indication: PAIN
     Route: 048
     Dates: start: 20130523, end: 20130524
  2. CLONIDINE [Suspect]
     Indication: HYPERTENSION

REACTIONS (11)
  - Dizziness [None]
  - Local swelling [None]
  - Pain in extremity [None]
  - Nausea [None]
  - Dyspnoea [None]
  - Heart rate increased [None]
  - Vision blurred [None]
  - Hypoaesthesia [None]
  - Migraine [None]
  - Feeling abnormal [None]
  - Disorientation [None]
